FAERS Safety Report 5513466-0 (Version None)
Quarter: 2007Q4

REPORT INFORMATION
  Report Type: 
  Country: None (occurrence: None)
  Receive Date: 20071112
  Receipt Date: 20071031
  Transmission Date: 20080405
  Serious: Yes (Death, Life-Threatening, Hospitalization)
  Sender: FDA-Public Use
  Company Number: SE-PFIZER INC-2007091902

PATIENT
  Sex: Male

DRUGS (9)
  1. LYRICA [Suspect]
     Indication: ANXIETY
     Route: 048
     Dates: start: 20070516, end: 20070612
  2. RISPERDAL [Concomitant]
     Route: 048
  3. MOVICOL [Concomitant]
     Route: 048
  4. ENALAPRIL MALEATE [Concomitant]
  5. ZOPICLONE [Concomitant]
  6. CITALOPRAM [Concomitant]
  7. THERALEN [Concomitant]
     Route: 048
  8. OXASCAND [Concomitant]
     Route: 048
  9. NOVOMIX [Concomitant]

REACTIONS (1)
  - PULMONARY EMBOLISM [None]
